FAERS Safety Report 5466362-1 (Version None)
Quarter: 2007Q3

REPORT INFORMATION
  Report Type: 
  Country: None (occurrence: None)
  Receive Date: 20070920
  Receipt Date: 20070831
  Transmission Date: 20080115
  Serious: Yes (Hospitalization)
  Sender: FDA-Public Use
  Company Number: 13894902

PATIENT
  Sex: Female
  Weight: 56.69 kg

DRUGS (4)
  1. EMSAM [Suspect]
     Dosage: 10 MILLIGRAM
     Dates: start: 20070501, end: 20070601
  2. PROZAC [Concomitant]
  3. TRILEPTAL [Concomitant]
  4. ATIVAN [Concomitant]

REACTIONS (3)
  - PSYCHOTIC DISORDER [None]
  - SUICIDAL IDEATION [None]
  - URTICARIA [None]
